FAERS Safety Report 18547740 (Version 2)
Quarter: 2020Q4

REPORT INFORMATION
  Report Type: Report from Study
  Country: PL (occurrence: PL)
  Receive Date: 20201126
  Receipt Date: 20201217
  Transmission Date: 20210114
  Serious: Yes (Other)
  Sender: FDA-Public Use
  Company Number: PL-ROCHE-2718538

PATIENT
  Age: 43 Year
  Weight: 95 kg

DRUGS (2)
  1. EMICIZUMAB. [Suspect]
     Active Substance: EMICIZUMAB
     Indication: HAEMOPHILIA A WITH ANTI FACTOR VIII
     Dosage: LOADING DOSE FOR THE FIRST 4 WEEKS
     Route: 058
     Dates: start: 2016
  2. EMICIZUMAB. [Suspect]
     Active Substance: EMICIZUMAB
     Dosage: MAINTENANCE DOSE UP TO THE END OF STUDY
     Route: 058

REACTIONS (1)
  - Post procedural haemorrhage [Unknown]
